FAERS Safety Report 16142826 (Version 2)
Quarter: 2019Q2

REPORT INFORMATION
  Report Type: Spontaneous
  Country: US (occurrence: US)
  Receive Date: 20190401
  Receipt Date: 20190402
  Transmission Date: 20190711
  Serious: Yes (Other)
  Sender: FDA-Public Use
  Company Number: US-ALLERGAN-1913840US

PATIENT
  Sex: Male

DRUGS (1)
  1. SAPHRIS [Suspect]
     Active Substance: ASENAPINE MALEATE
     Indication: PRODUCT USED FOR UNKNOWN INDICATION
     Dosage: 2 DF, QHS
     Route: 065
     Dates: start: 2015

REACTIONS (6)
  - Retching [Unknown]
  - Vomiting [Unknown]
  - Depressed level of consciousness [Unknown]
  - Choking [Unknown]
  - Cough [Unknown]
  - Inappropriate schedule of product administration [Unknown]
